FAERS Safety Report 9790724 (Version 1)
Quarter: 2013Q4

REPORT INFORMATION
  Report Type: Spontaneous
  Country: US (occurrence: US)
  Receive Date: 20131231
  Receipt Date: 20131231
  Transmission Date: 20140711
  Serious: No
  Sender: FDA-Public Use
  Company Number: US-PFIZER INC-2013373129

PATIENT
  Age: 48 Year
  Sex: Male
  Weight: 100 kg

DRUGS (2)
  1. LYRICA [Suspect]
     Indication: NEUROPATHY PERIPHERAL
     Dosage: 50 MG, 1X/DAY
     Route: 048
     Dates: start: 201311, end: 2013
  2. LYRICA [Suspect]
     Dosage: 200 MG DAILY (50MG IN MORNING AND 150MG AT NIGHT)
     Route: 048
     Dates: start: 2013

REACTIONS (8)
  - Off label use [Unknown]
  - Middle insomnia [Unknown]
  - Gastrooesophageal reflux disease [Unknown]
  - Throat irritation [Recovered/Resolved]
  - Chest pain [Recovered/Resolved]
  - Pain in extremity [Unknown]
  - Hypoaesthesia [Unknown]
  - Drug ineffective for unapproved indication [Unknown]
